FAERS Safety Report 24133089 (Version 1)
Quarter: 2024Q3

REPORT INFORMATION
  Report Type: Spontaneous
  Country: US (occurrence: None)
  Receive Date: 20240723
  Receipt Date: 20240723
  Transmission Date: 20241017
  Serious: No
  Sender: Public
  Company Number: None

PATIENT
  Age: 58 Year
  Sex: Female

DRUGS (8)
  1. XPHOZAH [Suspect]
     Active Substance: TENAPANOR HYDROCHLORIDE
     Indication: Hyperphosphataemia
     Dosage: OTHER QUANTITY : ONE TABLET TOTAL-TOL;?FREQUENCY : TWICE A DAY;?
     Route: 048
     Dates: start: 20240615
  2. AMLODIPINE [Concomitant]
     Active Substance: AMLODIPINE BESYLATE
  3. BASAGLAR [Concomitant]
     Active Substance: INSULIN GLARGINE
  4. Doxyctckine monohydrate [Concomitant]
  5. LOSARTAN [Concomitant]
  6. PANTOPRAZOLE [Concomitant]
  7. ASCORBIC ACID\BIOTIN\CALCIUM PANTOTHENATE\CYANOCOBALAMIN\FOLIC ACID\NI [Concomitant]
     Active Substance: ASCORBIC ACID\BIOTIN\CALCIUM PANTOTHENATE\CYANOCOBALAMIN\FOLIC ACID\NIACINAMIDE\PYRIDOXINE HYDROCHLO
  8. ROSUVASTATIN [Concomitant]

REACTIONS (4)
  - Vomiting [None]
  - Asthenia [None]
  - Nausea [None]
  - Therapy change [None]

NARRATIVE: CASE EVENT DATE: 20240723
